FAERS Safety Report 12663468 (Version 1)
Quarter: 2016Q3

REPORT INFORMATION
  Report Type: Spontaneous
  Country: US (occurrence: US)
  Receive Date: 20160818
  Receipt Date: 20160818
  Transmission Date: 20161109
  Serious: No
  Sender: FDA-Public Use
  Company Number: GXBR2016US002209

PATIENT
  Sex: Male

DRUGS (2)
  1. NITRO-BID [Suspect]
     Active Substance: NITROGLYCERIN
     Indication: FISTULA
     Dosage: UNK DF, UNK
     Route: 061
  2. PROTOZOL [Concomitant]
     Active Substance: METRONIDAZOLE
     Indication: FISTULA
     Dosage: UNK DF, UNK

REACTIONS (1)
  - Off label use [Unknown]
